FAERS Safety Report 15211203 (Version 1)
Quarter: 2018Q3

REPORT INFORMATION
  Report Type: Spontaneous
  Country: US (occurrence: US)
  Receive Date: 20180630
  Receipt Date: 20180630
  Transmission Date: 20181010
  Serious: Yes (Disabling)
  Sender: FDA-Public Use
  Company Number: None

PATIENT
  Age: 43 Year
  Sex: Female
  Weight: 71.1 kg

DRUGS (5)
  1. BREO ELLIPTA [Suspect]
     Active Substance: FLUTICASONE FUROATE\VILANTEROL TRIFENATATE
     Indication: ASTHMA
     Dosage: ?          QUANTITY:1 INHALATION(S);?
     Route: 055
     Dates: start: 20180301, end: 20180629
  2. FLONASE [Concomitant]
     Active Substance: FLUTICASONE PROPIONATE
  3. VITAMIN B COMPLEX [Concomitant]
     Active Substance: CYANOCOBALAMIN\DEXPANTHENOL\NIACINAMIDE\PYRIDOXINE HYDROCHLORIDE\RIBOFLAVIN 5^-PHOSPHATE SODIUM\THIAMINE HYDROCHLORIDE\VITAMIN B COMPLEX
  4. WOMEN^S ONE A DAY [Concomitant]
     Active Substance: VITAMINS
  5. CLARITIN [Concomitant]
     Active Substance: LORATADINE

REACTIONS (5)
  - Inability to afford medication [None]
  - Menstrual disorder [None]
  - Stress [None]
  - Insurance issue [None]
  - Amenorrhoea [None]

NARRATIVE: CASE EVENT DATE: 20180501
